FAERS Safety Report 6612741-6 (Version None)
Quarter: 2010Q1

REPORT INFORMATION
  Report Type: 
  Country: None (occurrence: None)
  Receive Date: 20100303
  Receipt Date: 20100224
  Transmission Date: 20100710
  Serious: Yes (Other)
  Sender: FDA-Public Use
  Company Number: US-ABBOTT-10P-163-0628849-00

PATIENT
  Sex: Male

DRUGS (1)
  1. HUMIRA [Suspect]
     Indication: UVEITIS
     Dates: start: 20091201, end: 20100215

REACTIONS (2)
  - BONE DISORDER [None]
  - LIMB TRAUMATIC AMPUTATION [None]
